FAERS Safety Report 4610584-6 (Version None)
Quarter: 2005Q1

REPORT INFORMATION
  Report Type: 
  Country: None (occurrence: None)
  Receive Date: 20050316
  Receipt Date: 20050204
  Transmission Date: 20050727
  Serious: Yes (Death)
  Sender: FDA-Public Use
  Company Number: 2005S1000406

PATIENT
  Age: 70 Year
  Sex: Male

DRUGS (5)
  1. CLOZAPINE [Suspect]
     Indication: SCHIZOPHRENIA
     Dosage: 200 MG; HS; PO
     Route: 048
     Dates: start: 20030701
  2. GLUCOTROL [Concomitant]
  3. LOTENSIN [Concomitant]
  4. FLOMAX [Concomitant]
  5. PREVACID [Concomitant]

REACTIONS (4)
  - AORTIC ANEURYSM RUPTURE [None]
  - CIRCULATORY COLLAPSE [None]
  - SUDDEN DEATH [None]
  - URINARY TRACT INFECTION [None]
